FAERS Safety Report 5592486-4 (Version None)
Quarter: 2008Q1

REPORT INFORMATION
  Report Type: 
  Country: None (occurrence: None)
  Receive Date: 20080115
  Receipt Date: 20080108
  Transmission Date: 20080703
  Serious: Yes (Hospitalization)
  Sender: FDA-Public Use
  Company Number: FR-GILEAD-2008-0014889

PATIENT
  Age: 49 Year
  Sex: Male
  Weight: 60 kg

DRUGS (9)
  1. TRUVADA [Suspect]
     Indication: HIV INFECTION
  2. FUZEON [Suspect]
     Indication: HIV INFECTION
     Dates: end: 20070628
  3. FUZEON [Suspect]
     Dates: end: 20070802
  4. KARDEGIC [Suspect]
     Indication: CEREBRAL ISCHAEMIA
     Route: 048
  5. SUBUTEX [Suspect]
     Indication: DRUG DEPENDENCE
     Route: 048
  6. DELURSAN [Suspect]
     Indication: CHOLELITHIASIS
  7. NORVIR [Concomitant]
     Route: 048
     Dates: start: 20070802, end: 20070821
  8. REYATAZ [Concomitant]
     Route: 048
     Dates: start: 20070802, end: 20070821
  9. PROGRAF [Concomitant]
     Route: 048
     Dates: start: 20061017, end: 20070821

REACTIONS (4)
  - ASTHENIA [None]
  - HYPERKALAEMIA [None]
  - RENAL FAILURE [None]
  - WEIGHT DECREASED [None]
